FAERS Safety Report 12412892 (Version 2)
Quarter: 2016Q2

REPORT INFORMATION
  Report Type: Spontaneous
  Country: US (occurrence: US)
  Receive Date: 20160527
  Receipt Date: 20160616
  Transmission Date: 20160815
  Serious: No
  Sender: FDA-Public Use
  Company Number: US-PFIZER INC-2016183191

PATIENT
  Age: 84 Year
  Sex: Female

DRUGS (14)
  1. NITROSTAT [Concomitant]
     Active Substance: NITROGLYCERIN
     Dosage: 0.4 MG, PLACE 1 TABLET AS NEEDED 1 (ILLEGIBLE) PRN CP, MR Q5 MIN X3 IF NO RELIED CALL 911
     Route: 060
  2. TRAZODONE HYDROCHLORIDE. [Concomitant]
     Active Substance: TRAZODONE HYDROCHLORIDE
     Dosage: 50 MG, TAKE 1/2 TO 1 TABLET EVERY NIGHT AT BEDTIME
     Route: 048
     Dates: start: 20150918
  3. TRIAMCINOLONE ACETONIDE. [Concomitant]
     Active Substance: TRIAMCINOLONE ACETONIDE
     Indication: ECZEMA
     Dosage: APPLY OINT TOPIC TWICE DAILY IF NEEDED
     Route: 061
     Dates: start: 20160105
  4. AZELASTINE HCL [Concomitant]
     Active Substance: AZELASTINE HYDROCHLORIDE
     Dosage: 2 SQUIRTS IN EACH NOSTRIL TWICE DAILY
     Route: 045
     Dates: start: 20160301
  5. LORAZEPAM. [Concomitant]
     Active Substance: LORAZEPAM
     Indication: ANXIETY
     Dosage: 0.5 TO 1 TAB UP TO THREE TIMES DAILY
     Route: 048
     Dates: start: 20090116
  6. POLYETHYLENE GLYCOL 3350. [Concomitant]
     Active Substance: POLYETHYLENE GLYCOL 3350
     Dosage: MIX 1 CAPFUL IN 8 OUNCES OF WATER AND DRINK DAILY AS DIRECTED
     Route: 048
     Dates: start: 20141010
  7. ASPIRIN. [Concomitant]
     Active Substance: ASPIRIN
     Dosage: 81 MG, DAILY
     Route: 048
  8. PRAVASTATIN SODIUM. [Concomitant]
     Active Substance: PRAVASTATIN SODIUM
     Dosage: 40 MG, ALTERNATE DAY (EVERY OTHER DAY)
     Route: 048
     Dates: start: 20100517
  9. LYRICA [Suspect]
     Active Substance: PREGABALIN
     Indication: OSTEOARTHRITIS
     Dosage: 25 MG, 2X/DAY
     Route: 048
     Dates: start: 20160219, end: 20160315
  10. LISINOPRIL. [Concomitant]
     Active Substance: LISINOPRIL
     Dosage: 5 MG, DAILY (EVERY DAY)
     Route: 048
     Dates: start: 20121022
  11. METOPROLOL SUCCINATE ER [Concomitant]
     Active Substance: METOPROLOL SUCCINATE
     Dosage: 25 MG, DAILY
     Route: 048
     Dates: start: 20120413
  12. VITAMIN D3 [Concomitant]
     Active Substance: CHOLECALCIFEROL
     Dosage: 1000 IU, DAILY
     Route: 048
     Dates: start: 20090505
  13. LYRICA [Suspect]
     Active Substance: PREGABALIN
     Indication: MUSCULOSKELETAL PAIN
  14. DILAUDID [Concomitant]
     Active Substance: HYDROMORPHONE HYDROCHLORIDE
     Indication: PAIN
     Dosage: 2MG 1/2 TO 1 TAB Q4H PRN
     Route: 048
     Dates: start: 20080616

REACTIONS (1)
  - Drug ineffective for unapproved indication [Unknown]
